FAERS Safety Report 6712878-7 (Version None)
Quarter: 2010Q2

REPORT INFORMATION
  Report Type: 
  Country: None (occurrence: None)
  Receive Date: 20100506
  Receipt Date: 20090716
  Transmission Date: 20101027
  Serious: Yes (Other)
  Sender: FDA-Public Use
  Company Number: DE-BAYER-200926840GPV

PATIENT
  Sex: Female

DRUGS (5)
  1. MIRENA [Suspect]
     Indication: CONTRACEPTION
     Route: 015
     Dates: start: 20070601, end: 20090519
  2. CLARITHROMYCIN [Concomitant]
     Indication: RESPIRATORY TRACT INFECTION
  3. MONURIL [Concomitant]
     Indication: DYSURIA
     Dosage: 3000 MG
  4. ANDROCUR [Concomitant]
     Indication: DRUG USE FOR UNKNOWN INDICATION
     Dosage: 15 DAYS INTAKE AND 13 DAYS PAUSE
  5. METO-HEXAL [Concomitant]
     Indication: HYPERTENSION
     Dosage: 142,5 1/3 - 0 - 1/3

REACTIONS (41)
  - ABDOMINAL DISTENSION [None]
  - ABDOMINAL PAIN LOWER [None]
  - ALCOHOL INTOLERANCE [None]
  - ALOPECIA [None]
  - ANXIETY [None]
  - APATHY [None]
  - ARRHYTHMIA [None]
  - ARTHRALGIA [None]
  - BACK PAIN [None]
  - DIZZINESS [None]
  - DYSPNOEA [None]
  - DYSURIA [None]
  - EAR DISCOMFORT [None]
  - FACE OEDEMA [None]
  - FATIGUE [None]
  - HAIR GROWTH ABNORMAL [None]
  - HEADACHE [None]
  - HEART RATE INCREASED [None]
  - HYPERHIDROSIS [None]
  - HYPERTENSION [None]
  - HYPOAESTHESIA [None]
  - LIBIDO DECREASED [None]
  - MALAISE [None]
  - MELANOCYTIC NAEVUS [None]
  - MICTURITION URGENCY [None]
  - MOOD SWINGS [None]
  - MUSCLE TIGHTNESS [None]
  - MYALGIA [None]
  - NASAL CONGESTION [None]
  - NAUSEA [None]
  - NERVOUSNESS [None]
  - NIGHTMARE [None]
  - PANIC ATTACK [None]
  - POST CONCUSSION SYNDROME [None]
  - SCAR PAIN [None]
  - SLEEP DISORDER [None]
  - SNORING [None]
  - TINNITUS [None]
  - TREMOR [None]
  - VISUAL IMPAIRMENT [None]
  - WEIGHT INCREASED [None]
